FAERS Safety Report 18063342 (Version 3)
Quarter: 2021Q3

REPORT INFORMATION
  Report Type: Spontaneous
  Country: US (occurrence: US)
  Receive Date: 20200724
  Receipt Date: 20210705
  Transmission Date: 20211014
  Serious: Yes (Hospitalization, Other)
  Sender: FDA-Public Use
  Company Number: US-TEVA-2020-US-1804931

PATIENT
  Age: 62 Year
  Sex: Male
  Weight: 136.2 kg

DRUGS (11)
  1. VALSARTAN ACTAVIS [Suspect]
     Active Substance: VALSARTAN
     Indication: HYPERTENSION
     Route: 048
     Dates: start: 20150427, end: 20150726
  2. PRAVASTATIN. [Concomitant]
     Active Substance: PRAVASTATIN
     Indication: BLOOD CHOLESTEROL INCREASED
     Dosage: 20 MILLIGRAM DAILY;
     Route: 048
     Dates: start: 2000, end: 202002
  3. POTASSIUM CHLORIDE. [Concomitant]
     Active Substance: POTASSIUM CHLORIDE
     Dosage: ONCE A DAY
     Dates: start: 2016
  4. VALSARTAN SOLCO [Suspect]
     Active Substance: VALSARTAN
     Indication: HYPERTENSION
     Route: 048
     Dates: start: 20151228, end: 20160327
  5. HUMULIN R U?500 [Concomitant]
     Active Substance: INSULIN HUMAN
     Indication: DIABETES MELLITUS
     Dosage: USE AN INSULIN PUMP EVERY DAY
     Dates: start: 1989
  6. TYLENOL [Concomitant]
     Active Substance: ACETAMINOPHEN
     Indication: PAIN
  7. VALSARTAN OHM LABORATORIES [Suspect]
     Active Substance: VALSARTAN
     Indication: HYPERTENSION
     Route: 048
     Dates: start: 20140812, end: 20141110
  8. VALSARTAN QUALITEST [Suspect]
     Active Substance: VALSARTAN
     Indication: HYPERTENSION
     Route: 048
     Dates: start: 20160318, end: 20160616
  9. LISINOPRIL. [Concomitant]
     Active Substance: LISINOPRIL
     Indication: HYPERTENSION
     Dosage: 20 MILLIGRAM DAILY;
     Route: 048
  10. VITAMIN A [Concomitant]
     Active Substance: VITAMIN A
     Dosage: 8000MCG/DAY
     Dates: start: 2016
  11. IRON SUPPLEMENTS [Concomitant]
     Active Substance: IRON
     Indication: ANAEMIA
     Dosage: 65MG ONCE A DAY
     Dates: start: 2016

REACTIONS (2)
  - Hepatocellular carcinoma [Recovered/Resolved]
  - Chronic hepatic failure [Not Recovered/Not Resolved]
